FAERS Safety Report 15785704 (Version 1)
Quarter: 2019Q1

REPORT INFORMATION
  Report Type: Spontaneous
  Country: US (occurrence: US)
  Receive Date: 20190103
  Receipt Date: 20190103
  Transmission Date: 20190417
  Serious: Yes (Other)
  Sender: FDA-Public Use
  Company Number: US-ELI_LILLY_AND_COMPANY-US201812012230

PATIENT
  Sex: Male

DRUGS (7)
  1. METFORMIN [Concomitant]
     Active Substance: METFORMIN HYDROCHLORIDE
     Indication: PRODUCT USED FOR UNKNOWN INDICATION
  2. BASAGLAR [Suspect]
     Active Substance: INSULIN GLARGINE
     Indication: TYPE 2 DIABETES MELLITUS
     Dosage: 42 U, UNKNOWN
     Route: 058
  3. DOXYCYCLINE. [Suspect]
     Active Substance: DOXYCYCLINE
     Indication: WOUND INFECTION STAPHYLOCOCCAL
     Dosage: 100 MG, BID
     Route: 065
  4. BASAGLAR [Suspect]
     Active Substance: INSULIN GLARGINE
     Dosage: 42 U, UNKNOWN
     Route: 058
  5. BACTRIM [Suspect]
     Active Substance: SULFAMETHOXAZOLE\TRIMETHOPRIM
     Indication: WOUND INFECTION STAPHYLOCOCCAL
     Dosage: UNK UNK, UNKNOWN
     Route: 065
     Dates: start: 2018
  6. TETRACYCLINE [Suspect]
     Active Substance: TETRACYCLINE
     Indication: WOUND INFECTION STAPHYLOCOCCAL
     Dosage: 500 MG, TID
     Route: 065
  7. GLIPERIDE [Concomitant]
     Active Substance: GLIMEPIRIDE
     Indication: PRODUCT USED FOR UNKNOWN INDICATION
     Dosage: UNK, EACH EVENING (BEFORE BED)

REACTIONS (5)
  - Hypertension [Unknown]
  - Blood glucose increased [Not Recovered/Not Resolved]
  - Wound infection staphylococcal [Unknown]
  - Glycosylated haemoglobin increased [Unknown]
  - Hypoglycaemic seizure [Recovered/Resolved]
